FAERS Safety Report 5120365-5 (Version None)
Quarter: 2006Q4

REPORT INFORMATION
  Report Type: 
  Country: None (occurrence: None)
  Receive Date: 20061004
  Receipt Date: 20060927
  Transmission Date: 20070319
  Serious: Yes (Hospitalization)
  Sender: FDA-Public Use
  Company Number: AU-BRISTOL-MYERS SQUIBB COMPANY-13523360

PATIENT
  Age: 59 Year
  Sex: Male

DRUGS (15)
  1. CARBOPLATIN [Suspect]
     Indication: NON-SMALL CELL LUNG CANCER
     Route: 042
     Dates: start: 20060818, end: 20060818
  2. PACLITAXEL [Suspect]
     Indication: NON-SMALL CELL LUNG CANCER
     Route: 042
     Dates: start: 20060818, end: 20060818
  3. PF-3512676 [Suspect]
     Indication: NON-SMALL CELL LUNG CANCER
     Route: 058
     Dates: start: 20060825, end: 20060825
  4. CELEBREX [Concomitant]
     Route: 048
     Dates: start: 20060601
  5. PERINDOPRIL ERBUMINE [Concomitant]
     Route: 048
     Dates: start: 19980101
  6. FISH OIL [Concomitant]
     Route: 048
     Dates: start: 20060201
  7. LASIX [Concomitant]
     Route: 048
     Dates: start: 19980101
  8. ATENOLOL [Concomitant]
     Route: 048
     Dates: start: 19980101
  9. LANOXIN [Concomitant]
     Route: 048
     Dates: start: 19980101
  10. SPIROCTAN [Concomitant]
     Route: 048
     Dates: start: 20060601
  11. WARFARIN SODIUM [Concomitant]
     Route: 048
     Dates: start: 19980101
  12. ZOLPIDEM TARTRATE [Concomitant]
     Route: 048
     Dates: start: 20060904
  13. DIABEX [Concomitant]
     Route: 048
     Dates: start: 20060915
  14. ACETAMINOPHEN W/ CODEINE [Concomitant]
     Route: 048
     Dates: start: 20060901
  15. PANADOL [Concomitant]
     Route: 048
     Dates: start: 20060101

REACTIONS (1)
  - CONFUSIONAL STATE [None]
